FAERS Safety Report 25332509 (Version 1)
Quarter: 2025Q2

REPORT INFORMATION
  Report Type: Spontaneous
  Country: US (occurrence: US)
  Receive Date: 20250519
  Receipt Date: 20250519
  Transmission Date: 20250717
  Serious: No
  Sender: CALLIDITAS THERAPEUTICS AB
  Company Number: US-Calliditas-2025CAL01226

PATIENT
  Age: 72 Year
  Sex: Male

DRUGS (12)
  1. TARPEYO [Suspect]
     Active Substance: BUDESONIDE
     Indication: IgA nephropathy
     Route: 048
     Dates: start: 20250211
  2. OZEMPIC [Concomitant]
     Active Substance: SEMAGLUTIDE
  3. FLUTICASONE [Concomitant]
     Active Substance: FLUTICASONE
  4. PRAVASTATIN [Concomitant]
     Active Substance: PRAVASTATIN
  5. METFORMIN [Concomitant]
     Active Substance: METFORMIN HYDROCHLORIDE
  6. CHOLECALCIFEROL [Concomitant]
     Active Substance: CHOLECALCIFEROL
  7. ASPIRIN [Concomitant]
     Active Substance: ASPIRIN
  8. ALLOPURINOL [Concomitant]
     Active Substance: ALLOPURINOL
  9. JARDIANCE [Concomitant]
     Active Substance: EMPAGLIFLOZIN
  10. SPIRONOLACTONE [Concomitant]
     Active Substance: SPIRONOLACTONE
  11. ATENOLOL [Concomitant]
     Active Substance: ATENOLOL
  12. PREDNISONE [Concomitant]
     Active Substance: PREDNISONE

REACTIONS (1)
  - Radiotherapy [Unknown]
